FAERS Safety Report 5218403-4 (Version None)
Quarter: 2007Q1

REPORT INFORMATION
  Report Type: 
  Country: None (occurrence: None)
  Receive Date: 20070124
  Receipt Date: 20070112
  Transmission Date: 20070707
  Serious: Yes (Other)
  Sender: FDA-Public Use
  Company Number: US-PFIZER INC-2007004365

PATIENT
  Sex: Female
  Weight: 112.5 kg

DRUGS (4)
  1. RELPAX [Suspect]
     Indication: MIGRAINE
     Route: 048
  2. TOPAMAX [Concomitant]
  3. LEXAPRO [Concomitant]
  4. METFORMIN HCL [Concomitant]

REACTIONS (3)
  - CONVULSION [None]
  - HEAD INJURY [None]
  - MIGRAINE [None]
